FAERS Safety Report 4658063-4 (Version None)
Quarter: 2005Q2

REPORT INFORMATION
  Report Type: 
  Country: None (occurrence: None)
  Receive Date: 20050510
  Receipt Date: 20050426
  Transmission Date: 20051028
  Serious: Yes (Other)
  Sender: FDA-Public Use
  Company Number: US-MERCK-0504USA04670

PATIENT

DRUGS (2)
  1. VIOXX [Suspect]
     Route: 048
     Dates: end: 20040101
  2. ASPIRIN [Suspect]
     Route: 065

REACTIONS (2)
  - DRUG INTERACTION [None]
  - GASTRIC ULCER [None]
